FAERS Safety Report 8857224 (Version 1)
Quarter: 2012Q4

REPORT INFORMATION
  Report Type: 
  Country: JP (occurrence: JP)
  Receive Date: 20121024
  Receipt Date: 20121024
  Transmission Date: 20130627
  Serious: Yes (Other)
  Sender: FDA-Public Use
  Company Number: JP-ELI_LILLY_AND_COMPANY-JP201104001731

PATIENT
  Age: 75 Year
  Sex: Female

DRUGS (1)
  1. FORTEO [Suspect]
     Dosage: UNK
     Route: 058
     Dates: start: 201104

REACTIONS (8)
  - Limb operation [Recovered/Resolved]
  - Decreased appetite [Unknown]
  - Arthralgia [Unknown]
  - Pain in extremity [Unknown]
  - Injection site bruising [Unknown]
  - Stress [Unknown]
  - Insomnia [Unknown]
  - Blood alkaline phosphatase increased [Unknown]
